FAERS Safety Report 5133526-6 (Version None)
Quarter: 2006Q4

REPORT INFORMATION
  Report Type: 
  Country: None (occurrence: None)
  Receive Date: 20061024
  Receipt Date: 20050928
  Transmission Date: 20070319
  Serious: No
  Sender: FDA-Public Use
  Company Number: US-BRISTOL-MYERS SQUIBB COMPANY-13125547

PATIENT
  Age: 2 Year
  Sex: Female
  Weight: 13 kg

DRUGS (2)
  1. TRIMOX [Suspect]
     Indication: SINUSITIS
     Route: 048
     Dates: start: 20050811, end: 20050901
  2. PREVACID [Concomitant]

REACTIONS (1)
  - TOOTH DISCOLOURATION [None]
